FAERS Safety Report 8540634-6 (Version None)
Quarter: 2012Q3

REPORT INFORMATION
  Report Type: 
  Country: None (occurrence: None)
  Receive Date: 20120713
  Receipt Date: 20110127
  Transmission Date: 20120928
  Serious: Yes (Death, Life-Threatening, Other)
  Sender: FDA-Public Use
  Company Number: 2011AP000065

PATIENT
  Age: 19 Year
  Sex: Female

DRUGS (6)
  1. NORTRIPTYLINE HCL [Suspect]
     Indication: MAJOR DEPRESSION
     Dosage: 100 MG; HS
  2. VENLAFAXINE HCL [Suspect]
     Indication: MAJOR DEPRESSION
     Dosage: 225 MG;
  3. RISPERIDONE [Suspect]
     Indication: PSYCHOTIC DISORDER
     Dosage: 5 MG, 1 MG, BID, 3 MG, QD, 2 MG,
  4. OLANZAPINE [Suspect]
     Indication: PSYCHOTIC DISORDER
     Dosage: 10 MG, 5 MG, QD,
  5. LOXAPINE [Suspect]
     Indication: PRODUCT USED FOR UNKNOWN INDICATION
     Dosage: 25 MG;
  6. DIPHENHYDRAMINE HCL [Suspect]
     Indication: PRODUCT USED FOR UNKNOWN INDICATION
     Dosage: 25 MG;

REACTIONS (9)
  - RESPIRATORY ARREST [None]
  - AMENORRHOEA [None]
  - HYPOTENSION [None]
  - PULSE ABSENT [None]
  - HYPERPROLACTINAEMIA [None]
  - PULMONARY EMBOLISM [None]
  - LOSS OF CONSCIOUSNESS [None]
  - MYDRIASIS [None]
  - WEIGHT INCREASED [None]
